FAERS Safety Report 17461501 (Version 3)
Quarter: 2020Q1

REPORT INFORMATION
  Report Type: Spontaneous
  Country: TR (occurrence: TR)
  Receive Date: 20200226
  Receipt Date: 20200310
  Transmission Date: 20200409
  Serious: Yes (Hospitalization, Other)
  Sender: FDA-Public Use
  Company Number: TR-PFIZER INC-2020078398

PATIENT
  Age: 19 Year
  Sex: Female

DRUGS (6)
  1. VINCRISTINE SULFATE. [Suspect]
     Active Substance: VINCRISTINE SULFATE
     Indication: NEPHROBLASTOMA
     Dosage: 1.5 MG/M2, CYCLIC (MAXIMUM 2 MG, ON DAY 1, ALTERNATED EVERY 3 WEEKS)
     Dates: start: 2004
  2. CYCLOPHOSPHAMIDE. [Suspect]
     Active Substance: CYCLOPHOSPHAMIDE
     Indication: NEPHROBLASTOMA
     Dosage: UNK, CYCLIC (1.2 G/M2 ON DAY 1, ALTERNATED EVERY 3 WEEKS)
     Dates: start: 2004
  3. CARBOPLATIN. [Suspect]
     Active Substance: CARBOPLATIN
     Indication: NEPHROBLASTOMA
     Dosage: 600 MG/M2, CYCLIC (SIX COURSES) (ON DAY 3, ALTERNATED EVERY 3 WEEKS)
     Dates: start: 2004
  4. IFOSFAMIDE. [Suspect]
     Active Substance: IFOSFAMIDE
     Indication: NEPHROBLASTOMA
     Dosage: UNK, CYCLIC (2 G/M^2 ON DAYS 1 TO 3, ALTERNATED EVERY 3 WEEKS)
     Dates: start: 2004
  5. ACTINOMYCIN D [Suspect]
     Active Substance: DACTINOMYCIN
     Indication: NEPHROBLASTOMA
     Dosage: UNK, CYCLIC UNK (15 GAMMA/KG, MAXIMUM 500 GAMMA, ON DAY 1, ALTERNATED EVERY 3 WEEKS)
     Dates: start: 2004
  6. ETOPOSIDE. [Suspect]
     Active Substance: ETOPOSIDE
     Indication: NEPHROBLASTOMA
     Dosage: 150 MG/M2, CYCLIC (ON DAYS 1 TO 3, ALTERNATED EVERY 3 WEEKS)
     Dates: start: 2004

REACTIONS (4)
  - Haematotoxicity [Recovered/Resolved]
  - Product use in unapproved indication [Unknown]
  - Off label use [Unknown]
  - Febrile neutropenia [Recovered/Resolved]

NARRATIVE: CASE EVENT DATE: 2004
